FAERS Safety Report 7709731-9 (Version None)
Quarter: 2011Q3

REPORT INFORMATION
  Report Type: 
  Country: None (occurrence: None)
  Receive Date: 20110819
  Receipt Date: 20110810
  Transmission Date: 20111222
  Serious: Yes (Hospitalization)
  Sender: FDA-Public Use
  Company Number: 1000022811

PATIENT
  Age: 90 Year
  Sex: Male

DRUGS (4)
  1. PERMIXON (LIPIDOSTEROLIC EXTRACT OF SERENOA REPENS) [Suspect]
     Indication: PROSTATIC ADENOMA
     Dosage: 2 DF (1 DOSAGE FORMS, 2 IN 1 D), ORAL
     Route: 048
     Dates: end: 20110624
  2. ISKEDYL FORT (DIHYDROERGOCRISTINE MESILATE, RAUBASINE) (TABLETS) [Suspect]
     Indication: ARTERIOSCLEROSIS
     Dosage: 2 DF (1 DOSAGE FORMS, 2 IN 1 D), ORAL
     Route: 048
     Dates: end: 20110624
  3. TENSTATEN (CICLETANINE HYDROCHLORIDE) [Suspect]
     Indication: HYPERTENSION
     Dosage: 50 MG, ORAL
     Route: 048
     Dates: end: 20110624
  4. MILNACIPRAN (MILNACIPRAN HYDROCHLORIDE) (CAPSULES) [Suspect]
     Indication: HYPERTENSION
     Dosage: 100 MG (50 MG, 2 IN 1 D), ORAL
     Route: 048
     Dates: end: 20110627

REACTIONS (4)
  - HYPOTENSION [None]
  - HEADACHE [None]
  - TREMOR [None]
  - VERTIGO [None]
